FAERS Safety Report 5332121-3 (Version None)
Quarter: 2007Q2

REPORT INFORMATION
  Report Type: 
  Country: None (occurrence: None)
  Receive Date: 20070521
  Receipt Date: 20070509
  Transmission Date: 20071010
  Serious: Yes (Hospitalization)
  Sender: FDA-Public Use
  Company Number: PHO-2007-008

PATIENT
  Age: 85 Year
  Sex: Male

DRUGS (5)
  1. PHOTOFRIN [Suspect]
     Indication: BLADDER CANCER
     Dosage: 109 MG IV
     Route: 042
     Dates: start: 20070423
  2. LIPITOR [Concomitant]
  3. EZETIMIBE [Concomitant]
  4. AVAPRO [Concomitant]
  5. COREG (CARVEDILOL PHOSPHATE) [Concomitant]

REACTIONS (9)
  - ANOREXIA [None]
  - BLOOD CREATININE INCREASED [None]
  - DYSURIA [None]
  - FATIGUE [None]
  - MICTURITION URGENCY [None]
  - POLLAKIURIA [None]
  - URETERIC OBSTRUCTION [None]
  - URETERIC STENOSIS [None]
  - URINARY RETENTION [None]
